FAERS Safety Report 23755985 (Version 1)
Quarter: 2024Q2

REPORT INFORMATION
  Report Type: Spontaneous
  Country: IT (occurrence: TH)
  Receive Date: 20240418
  Receipt Date: 20240418
  Transmission Date: 20240715
  Serious: Yes (Hospitalization, Other)
  Sender: FDA-Public Use
  Company Number: IT-SA-2024SA115102

PATIENT
  Age: 70 Year
  Sex: Male

DRUGS (5)
  1. DUPILUMAB [Suspect]
     Active Substance: DUPILUMAB
     Indication: Pemphigoid
     Dosage: 600 MG, 1X (INDUCTION DOSE)
     Dates: start: 2023, end: 2023
  2. DUPILUMAB [Suspect]
     Active Substance: DUPILUMAB
     Dosage: 300 MG
     Dates: start: 2023, end: 202306
  3. CORTICOSTEROID NOS [Concomitant]
     Active Substance: CORTICOSTEROID NOS
     Indication: Pemphigoid
     Dosage: UNK
     Route: 048
  4. CORTICOSTEROID NOS [Concomitant]
     Active Substance: CORTICOSTEROID NOS
     Dosage: 0.75 MG/KG, QD, SYSTEMIC
  5. CYCLOPHOSPHAMIDE [Concomitant]
     Active Substance: CYCLOPHOSPHAMIDE
     Indication: Pemphigoid
     Dosage: UNK

REACTIONS (9)
  - Pemphigoid [Unknown]
  - Condition aggravated [Unknown]
  - Dermatitis bullous [Unknown]
  - Erythema [Unknown]
  - Electrolyte imbalance [Unknown]
  - Renal impairment [Unknown]
  - Off label use [Unknown]
  - Myocardial infarction [Recovered/Resolved]
  - Eosinophilia [Unknown]

NARRATIVE: CASE EVENT DATE: 20230101
